FAERS Safety Report 24573320 (Version 1)
Quarter: 2024Q4

REPORT INFORMATION
  Report Type: Spontaneous
  Country: RU (occurrence: RU)
  Receive Date: 20241101
  Receipt Date: 20241101
  Transmission Date: 20250115
  Serious: Yes (Other)
  Sender: PURDUE
  Company Number: RU-PURDUE-USA-2024-0312968

PATIENT

DRUGS (3)
  1. FENOFIBRATE [Suspect]
     Active Substance: FENOFIBRATE
     Indication: Hypolipidaemia
     Dosage: 145 MILLIGRAM
     Route: 048
  2. ATORVASTATIN [Suspect]
     Active Substance: ATORVASTATIN
     Indication: Hypolipidaemia
     Dosage: 20 MILLIGRAM
     Route: 048
  3. EZETIMIBE [Suspect]
     Active Substance: EZETIMIBE
     Indication: Hypolipidaemia
     Dosage: 10 MILLIGRAM
     Route: 048

REACTIONS (3)
  - Renal impairment [Unknown]
  - Lipids abnormal [Unknown]
  - Drug ineffective [Unknown]
